FAERS Safety Report 21004066 (Version 1)
Quarter: 2022Q2

REPORT INFORMATION
  Report Type: Spontaneous
  Country: CN (occurrence: CN)
  Receive Date: 20220624
  Receipt Date: 20220624
  Transmission Date: 20220721
  Serious: Yes (Other)
  Sender: FDA-Public Use
  Company Number: CN-PFIZER INC-PV202200007791

PATIENT
  Age: 61 Year
  Sex: Female
  Weight: 42.5 kg

DRUGS (2)
  1. SOLU-MEDROL [Suspect]
     Active Substance: METHYLPREDNISOLONE SODIUM SUCCINATE
     Indication: Immunomodulatory therapy
     Dosage: 40 MG, 1X/DAY
     Route: 041
     Dates: start: 20220516, end: 20220531
  2. SODIUM CHLORIDE [Concomitant]
     Active Substance: SODIUM CHLORIDE
     Indication: Vehicle solution use
     Dosage: 100 ML, 1X/DAY
     Route: 041
     Dates: start: 20220516, end: 20220531

REACTIONS (2)
  - Mental disorder [Unknown]
  - Disorganised speech [Unknown]

NARRATIVE: CASE EVENT DATE: 20220529
